FAERS Safety Report 8519672-5 (Version None)
Quarter: 2012Q3

REPORT INFORMATION
  Report Type: 
  Country: None (occurrence: None)
  Receive Date: 20120719
  Receipt Date: 20120705
  Transmission Date: 20120928
  Serious: No
  Sender: FDA-Public Use
  Company Number: US-009507513-1207USA001399

PATIENT

DRUGS (6)
  1. PRINIVIL [Suspect]
     Indication: HYPERTENSION
     Dosage: 20 MG, BID
     Route: 048
     Dates: start: 20120101
  2. ASPIRIN [Concomitant]
  3. PRINIVIL [Suspect]
     Dosage: 20 MG, QD
     Route: 048
     Dates: start: 20120201, end: 20120101
  4. EFFIENT [Concomitant]
  5. METOPROLOL SUCCINATE [Concomitant]
  6. LIPITOR [Concomitant]

REACTIONS (3)
  - ANOSMIA [None]
  - HYPERTENSION [None]
  - HYPOGEUSIA [None]
